FAERS Safety Report 24899427 (Version 1)
Quarter: 2025Q1

REPORT INFORMATION
  Report Type: Other
  Country: CN (occurrence: CN)
  Receive Date: 20250129
  Receipt Date: 20250129
  Transmission Date: 20250409
  Serious: Yes (Other)
  Sender: APPCO PHARMA LLC
  Company Number: CN-Appco Pharma LLC-2170025

PATIENT
  Age: 39 Year
  Sex: Male

DRUGS (2)
  1. BACLOFEN [Suspect]
     Active Substance: BACLOFEN
     Indication: Hiccups
  2. CHLORPROMAZINE HYDROCHLORIDE [Suspect]
     Active Substance: CHLORPROMAZINE HYDROCHLORIDE

REACTIONS (4)
  - Off label use [Unknown]
  - Drug interaction [Unknown]
  - Coma [Recovered/Resolved]
  - Overdose [Unknown]
